FAERS Safety Report 4968200-X (Version None)
Quarter: 2006Q2

REPORT INFORMATION
  Report Type: 
  Country: None (occurrence: None)
  Receive Date: 20060410
  Receipt Date: 20060330
  Transmission Date: 20061013
  Serious: Yes (Life-Threatening)
  Sender: FDA-Public Use
  Company Number: JP-AVENTIS-200611056JP

PATIENT
  Age: 70 Year
  Sex: Female

DRUGS (1)
  1. KETEK [Suspect]
     Route: 048

REACTIONS (3)
  - APALLIC SYNDROME [None]
  - LOSS OF CONSCIOUSNESS [None]
  - VENTRICULAR FIBRILLATION [None]
